FAERS Safety Report 4625087-2 (Version None)
Quarter: 2005Q1

REPORT INFORMATION
  Report Type: 
  Country: None (occurrence: None)
  Receive Date: 20050325
  Receipt Date: 20050118
  Transmission Date: 20050727
  Serious: No
  Sender: FDA-Public Use
  Company Number: USA050188575

PATIENT
  Age: 73 Year
  Sex: Female

DRUGS (1)
  1. FORTEO [Suspect]
     Indication: BONE DENSITY INCREASED
     Dates: start: 20030801

REACTIONS (3)
  - FATIGUE [None]
  - INJECTION SITE HAEMORRHAGE [None]
  - INJECTION SITE PAIN [None]
